FAERS Safety Report 7033118-8 (Version None)
Quarter: 2010Q4

REPORT INFORMATION
  Report Type: 
  Country: None (occurrence: None)
  Receive Date: 20101007
  Receipt Date: 20100929
  Transmission Date: 20110411
  Serious: Yes (Other)
  Sender: FDA-Public Use
  Company Number: DE-ROXANE LABORATORIES, INC.-2010-RO-01282RO

PATIENT
  Age: 11 Year
  Sex: Female

DRUGS (4)
  1. CYCLOPHOSPHAMIDE [Suspect]
     Indication: SJOGREN'S SYNDROME
  2. HYDROXYCHLOROQUINE [Suspect]
     Indication: SJOGREN'S SYNDROME
  3. METHYLPREDNISOLONE [Suspect]
     Indication: SJOGREN'S SYNDROME
  4. PREDNISOLONE [Suspect]
     Indication: SJOGREN'S SYNDROME
     Route: 048

REACTIONS (2)
  - DISEASE RECURRENCE [None]
  - EPIDURAL LIPOMATOSIS [None]
